FAERS Safety Report 9266705 (Version 2)
Quarter: 2013Q2

REPORT INFORMATION
  Report Type: Spontaneous
  Country: US (occurrence: US)
  Receive Date: 20130502
  Receipt Date: 20130516
  Transmission Date: 20140414
  Serious: Yes (Hospitalization)
  Sender: FDA-Public Use
  Company Number: US-PFIZER INC-2013136542

PATIENT
  Sex: Female

DRUGS (1)
  1. DILANTIN [Suspect]
     Indication: CONVULSION
     Dosage: 400MG ON MONDAY/ WEDNESDAY/ FRIDAY AND 300MG ON TUESDAY/ THURSDAY/ SATURDAY/ SUNDAY
     Route: 048
     Dates: start: 1991

REACTIONS (4)
  - Drug ineffective [Recovered/Resolved]
  - Malaise [Recovered/Resolved]
  - Asthenia [Not Recovered/Not Resolved]
  - Fatigue [Not Recovered/Not Resolved]
